FAERS Safety Report 10027463 (Version 2)
Quarter: 2014Q2

REPORT INFORMATION
  Report Type: Spontaneous
  Country: US (occurrence: US)
  Receive Date: 20140321
  Receipt Date: 20140409
  Transmission Date: 20141212
  Serious: No
  Sender: FDA-Public Use
  Company Number: US-PFIZER INC-2014081830

PATIENT
  Age: 72 Year
  Sex: Female
  Weight: 94.33 kg

DRUGS (3)
  1. LYRICA [Suspect]
     Indication: NEUROPATHY PERIPHERAL
     Dosage: 75 MG, 2X/DAY
     Dates: start: 201303
  2. MELOXICAM [Concomitant]
     Indication: ARTHRITIS
     Dosage: 50 MG, DAILY
  3. LISINOPRIL W/HYDROCHLOROTHIAZIDE [Concomitant]
     Indication: BLOOD PRESSURE ABNORMAL
     Dosage: [LISINOPRIL 20MG]/[HYDROCHLOROTHIAZIDE 12.5MG] DAILY

REACTIONS (1)
  - Fatigue [Recovering/Resolving]
